FAERS Safety Report 5247729-3 (Version None)
Quarter: 2007Q1

REPORT INFORMATION
  Report Type: 
  Country: None (occurrence: None)
  Receive Date: 20070222
  Receipt Date: 20070205
  Transmission Date: 20070707
  Serious: Yes (Hospitalization)
  Sender: FDA-Public Use
  Company Number: 2007-00280

PATIENT
  Age: 58 Year
  Sex: Male

DRUGS (3)
  1. VELCADE [Suspect]
     Indication: MULTIPLE MYELOMA
     Dates: start: 20060829, end: 20061109
  2. DEXAMETHASONE [Suspect]
     Indication: MULTIPLE MYELOMA
     Dates: end: 20061109
  3. MELPHALAN(MELPHALAN) VIAL [Suspect]
     Indication: MULTIPLE MYELOMA
     Dates: start: 20061214

REACTIONS (13)
  - AGITATION [None]
  - BACK PAIN [None]
  - CARDIAC FAILURE [None]
  - CONFUSIONAL STATE [None]
  - MUCOSAL INFLAMMATION [None]
  - MUSCLE RIGIDITY [None]
  - NERVOUS SYSTEM DISORDER [None]
  - PELVIC PAIN [None]
  - PURPURA [None]
  - PYREXIA [None]
  - RASH [None]
  - THROMBOCYTOPENIA [None]
  - URINARY TRACT INFECTION [None]
